FAERS Safety Report 25514920 (Version 1)
Quarter: 2025Q3

REPORT INFORMATION
  Report Type: Spontaneous
  Country: CN (occurrence: CN)
  Receive Date: 20250703
  Receipt Date: 20250703
  Transmission Date: 20251021
  Serious: Yes (Hospitalization, Disabling)
  Sender: BEIGENE
  Company Number: CN-BEIGENE-BGN-2025-010500

PATIENT
  Age: 55 Year
  Weight: 50.8 kg

DRUGS (12)
  1. TISLELIZUMAB [Suspect]
     Active Substance: TISLELIZUMAB
     Indication: Nasopharyngeal cancer
  2. TISLELIZUMAB [Suspect]
     Active Substance: TISLELIZUMAB
     Route: 041
  3. TISLELIZUMAB [Suspect]
     Active Substance: TISLELIZUMAB
     Route: 041
  4. TISLELIZUMAB [Suspect]
     Active Substance: TISLELIZUMAB
  5. GEMCITABINE HYDROCHLORIDE [Suspect]
     Active Substance: GEMCITABINE HYDROCHLORIDE
     Indication: Nasopharyngeal cancer
     Dosage: 1.6 GRAM, QD
     Route: 041
  6. GEMCITABINE HYDROCHLORIDE [Suspect]
     Active Substance: GEMCITABINE HYDROCHLORIDE
     Dosage: 1.6 GRAM, QD
  7. CISPLATIN [Suspect]
     Active Substance: CISPLATIN
     Indication: Nasopharyngeal cancer
     Dosage: 44 MILLIGRAM, QD
     Route: 041
  8. CISPLATIN [Suspect]
     Active Substance: CISPLATIN
     Dosage: 44 MILLIGRAM, QD
  9. SODIUM CHLORIDE [Concomitant]
     Active Substance: SODIUM CHLORIDE
     Indication: Vehicle solution use
     Dosage: 100 MILLILITER, QD
  10. SODIUM CHLORIDE [Concomitant]
     Active Substance: SODIUM CHLORIDE
     Dosage: 100 MILLILITER, QD
     Route: 041
  11. SODIUM CHLORIDE [Concomitant]
     Active Substance: SODIUM CHLORIDE
     Dosage: 250 MILLILITER, QD
  12. SODIUM CHLORIDE [Concomitant]
     Active Substance: SODIUM CHLORIDE
     Dosage: 250 MILLILITER, QD
     Route: 041

REACTIONS (4)
  - Renal failure [Recovering/Resolving]
  - Acute kidney injury [Recovering/Resolving]
  - Metabolic acidosis [Recovering/Resolving]
  - Hyperkalaemia [Recovering/Resolving]
